FAERS Safety Report 4909132-2 (Version None)
Quarter: 2006Q1

REPORT INFORMATION
  Report Type: 
  Country: None (occurrence: None)
  Receive Date: 20060208
  Receipt Date: 20060130
  Transmission Date: 20060701
  Serious: Yes (Other)
  Sender: FDA-Public Use
  Company Number: SUS1-2006-00107

PATIENT
  Age: 15 Year
  Sex: Male

DRUGS (1)
  1. ADDERALL XR 10 [Suspect]
     Indication: ATTENTION DEFICIT/HYPERACTIVITY DISORDER
     Dosage: 25 MG, 1X/DAY: QD
     Dates: start: 20040101

REACTIONS (3)
  - DRY MOUTH [None]
  - SALIVARY DUCT OBSTRUCTION [None]
  - SALIVARY GLAND ENLARGEMENT [None]
